FAERS Safety Report 20835068 (Version 1)
Quarter: 2022Q2

REPORT INFORMATION
  Report Type: Report from Study
  Country: CA (occurrence: CA)
  Receive Date: 20220516
  Receipt Date: 20220516
  Transmission Date: 20220721
  Serious: Yes (Hospitalization)
  Sender: FDA-Public Use
  Company Number: CA-ABBVIE-22K-028-4259928-00

PATIENT
  Sex: Male

DRUGS (1)
  1. SKYRIZI [Suspect]
     Active Substance: RISANKIZUMAB-RZAA
     Indication: Psoriasis
     Route: 058
     Dates: start: 20201119

REACTIONS (8)
  - Haemoptysis [Unknown]
  - COVID-19 [Recovered/Resolved]
  - General symptom [Recovered/Resolved]
  - Exposure to SARS-CoV-2 [Unknown]
  - Cough [Unknown]
  - Dyspnoea [Unknown]
  - Infection [Unknown]
  - Psoriasis [Unknown]

NARRATIVE: CASE EVENT DATE: 20220101
